FAERS Safety Report 21380036 (Version 3)
Quarter: 2022Q4

REPORT INFORMATION
  Report Type: Report from Study
  Country: ES (occurrence: ES)
  Receive Date: 20220927
  Receipt Date: 20221213
  Transmission Date: 20230113
  Serious: Yes (Other)
  Sender: FDA-Public Use
  Company Number: ES-BAYER-2022P015098

PATIENT
  Sex: Female

DRUGS (1)
  1. MIRENA [Suspect]
     Active Substance: LEVONORGESTREL
     Indication: Heavy menstrual bleeding
     Dosage: 20?G/DAY
     Route: 015
     Dates: start: 20220829, end: 20220829

REACTIONS (5)
  - Device breakage [None]
  - Device physical property issue [None]
  - Complication of device insertion [None]
  - Device difficult to use [None]
  - Uterine spasm [None]

NARRATIVE: CASE EVENT DATE: 20220829
